FAERS Safety Report 24098189 (Version 1)
Quarter: 2024Q3

REPORT INFORMATION
  Report Type: Spontaneous
  Country: US (occurrence: US)
  Receive Date: 20240716
  Receipt Date: 20240716
  Transmission Date: 20241016
  Serious: Yes (Other)
  Sender: AIMMUNE
  Company Number: US-ZENPEP LLC-2024AIMT01077

PATIENT
  Sex: Female
  Weight: 56.009 kg

DRUGS (2)
  1. ZENPEP [Suspect]
     Active Substance: PANCRELIPASE AMYLASE\PANCRELIPASE LIPASE\PANCRELIPASE PROTEASE
     Indication: Pancreatitis
     Dosage: 5,000 USP, 15 PILLS EACH DAY
     Route: 048
     Dates: start: 2021
  2. ZENPEP [Suspect]
     Active Substance: PANCRELIPASE AMYLASE\PANCRELIPASE LIPASE\PANCRELIPASE PROTEASE
     Dosage: 5,000 USP, 15 PILLS EACH DAY, ONCE LAST DOSE PRIOR EVENT
     Route: 048

REACTIONS (4)
  - Encephalopathy [Not Recovered/Not Resolved]
  - Memory impairment [Not Recovered/Not Resolved]
  - Product use issue [Not Recovered/Not Resolved]
  - Therapy interrupted [Not Recovered/Not Resolved]

NARRATIVE: CASE EVENT DATE: 20230101
